FAERS Safety Report 6630315-8 (Version None)
Quarter: 2010Q1

REPORT INFORMATION
  Report Type: 
  Country: None (occurrence: None)
  Receive Date: 20100311
  Receipt Date: 20100302
  Transmission Date: 20100710
  Serious: No
  Sender: FDA-Public Use
  Company Number: US-BAXTER-2010BH001340

PATIENT
  Age: 22 Year
  Sex: Female
  Weight: 65 kg

DRUGS (1)
  1. HEPARIN SODIUM INJECTION [Suspect]
     Indication: PROTEIN S DEFICIENCY
     Route: 058
     Dates: start: 20080114, end: 20080201

REACTIONS (6)
  - DRUG EXPOSURE DURING PREGNANCY [None]
  - PYREXIA [None]
  - RASH [None]
  - SWELLING [None]
  - URTICARIA [None]
  - VOMITING [None]
